FAERS Safety Report 7346927-2 (Version None)
Quarter: 2011Q1

REPORT INFORMATION
  Report Type: 
  Country: None (occurrence: None)
  Receive Date: 20110311
  Receipt Date: 20110304
  Transmission Date: 20110831
  Serious: Yes (Other)
  Sender: FDA-Public Use
  Company Number: ES-JNJFOC-20110303160

PATIENT
  Age: 25 Year
  Sex: Male

DRUGS (1)
  1. FORTASEC [Suspect]
     Indication: GASTROENTERITIS
     Route: 048

REACTIONS (1)
  - PALATAL OEDEMA [None]
